FAERS Safety Report 9130240 (Version 1)
Quarter: 2013Q1

REPORT INFORMATION
  Report Type: Spontaneous
  Country: US (occurrence: US)
  Receive Date: 20130228
  Receipt Date: 20130228
  Transmission Date: 20140127
  Serious: Yes (Other)
  Sender: FDA-Public Use
  Company Number: US-ROCHE-795903

PATIENT
  Age: 53 Year
  Sex: 0
  Weight: 77.6 kg

DRUGS (8)
  1. ACTEMRA [Suspect]
     Indication: RHEUMATOID ARTHRITIS
     Route: 042
  2. ACTEMRA [Suspect]
     Dosage: DOSE: 621.8 MG
     Route: 042
  3. ISORDIL [Concomitant]
     Route: 065
  4. HCTZ [Concomitant]
     Route: 065
  5. LISINOPRIL [Concomitant]
     Route: 065
  6. LOPRESSOR [Concomitant]
     Route: 065
  7. NOVOLOG [Concomitant]
     Route: 065
  8. ZYRTEC [Concomitant]
     Route: 048

REACTIONS (5)
  - Urticaria [Recovered/Resolved]
  - Pruritus generalised [Recovered/Resolved]
  - Chest discomfort [Unknown]
  - Pruritus [Unknown]
  - Swelling face [Unknown]
